FAERS Safety Report 4502840-7 (Version None)
Quarter: 2004Q4

REPORT INFORMATION
  Report Type: 
  Country: None (occurrence: None)
  Receive Date: 20041117
  Receipt Date: 20041110
  Transmission Date: 20050328
  Serious: Yes (Hospitalization)
  Sender: FDA-Public Use
  Company Number: US-JNJFOC-20041103025

PATIENT
  Age: 69 Year
  Sex: Female

DRUGS (10)
  1. DURAGESIC [Suspect]
     Route: 062
  2. NITROGLYCERIN [Concomitant]
     Route: 062
  3. SPIROLACTONE [Concomitant]
     Route: 049
  4. FOLIC ACID [Concomitant]
     Indication: DRUG USE FOR UNKNOWN INDICATION
     Route: 049
  5. ALTACE [Concomitant]
     Route: 049
  6. METOPROLOL [Concomitant]
     Route: 049
  7. LASIX [Concomitant]
     Indication: DIURETIC THERAPY
     Route: 049
  8. PREVACID [Concomitant]
     Route: 049
  9. PROMETHAZINE [Concomitant]
     Route: 049
  10. CIPRO XR [Concomitant]
     Indication: LIVER DISORDER
     Route: 049

REACTIONS (1)
  - AMMONIA INCREASED [None]
